FAERS Safety Report 5766464-6 (Version None)
Quarter: 2008Q2

REPORT INFORMATION
  Report Type: 
  Country: None (occurrence: None)
  Receive Date: 20080606
  Receipt Date: 20080526
  Transmission Date: 20081010
  Serious: Yes (Death)
  Sender: FDA-Public Use
  Company Number: 2008AL006249

PATIENT
  Age: 64 Year
  Sex: Male

DRUGS (5)
  1. RANITIDINE [Suspect]
  2. CLOZAPINE [Concomitant]
  3. ZAPONEX [Concomitant]
  4. ALBUTEROL [Concomitant]
  5. VALPROIC ACID [Concomitant]

REACTIONS (3)
  - CARDIAC ARREST [None]
  - CIRCULATORY COLLAPSE [None]
  - DRUG INTERACTION [None]
